FAERS Safety Report 5663813-4 (Version None)
Quarter: 2008Q1

REPORT INFORMATION
  Report Type: 
  Country: None (occurrence: None)
  Receive Date: 20080307
  Receipt Date: 20080222
  Transmission Date: 20080703
  Serious: Yes (Other)
  Sender: FDA-Public Use
  Company Number: 2008004549

PATIENT
  Sex: Male

DRUGS (1)
  1. NICORETTE [Suspect]
     Dosage: TRANSDERMAL
     Route: 062

REACTIONS (1)
  - CHEST PAIN [None]
